FAERS Safety Report 5941725-6 (Version None)
Quarter: 2008Q4

REPORT INFORMATION
  Report Type: 
  Country: None (occurrence: None)
  Receive Date: 20081105
  Receipt Date: 20081031
  Transmission Date: 20090506
  Serious: Yes (Other)
  Sender: FDA-Public Use
  Company Number: NL-BRISTOL-MYERS SQUIBB COMPANY-14391247

PATIENT
  Age: 53 Year
  Sex: Male

DRUGS (2)
  1. TRIAMCINOLONE ACETONIDE [Suspect]
     Indication: NERVE BLOCK
  2. LIDOCAINE [Suspect]
     Indication: NERVE BLOCK
     Dosage: LIDOCAINE 1%,2CM3

REACTIONS (1)
  - SPINAL CORD INFARCTION [None]
